FAERS Safety Report 16850776 (Version 1)
Quarter: 2019Q3

REPORT INFORMATION
  Report Type: Spontaneous
  Country: US (occurrence: US)
  Receive Date: 20190925
  Receipt Date: 20190925
  Transmission Date: 20191005
  Serious: No
  Sender: FDA-Public Use
  Company Number: US-THERAPEUTICSMD-2019TMD01200

PATIENT
  Sex: Female
  Weight: 65.76 kg

DRUGS (7)
  1. METFORMIN [Concomitant]
     Active Substance: METFORMIN HYDROCHLORIDE
  2. STARLIX [Concomitant]
     Active Substance: NATEGLINIDE
  3. IMVEXXY [Suspect]
     Active Substance: ESTRADIOL
     Indication: ATROPHIC VULVOVAGINITIS
     Dosage: 10 ?G, 2X/WEEK AT NIGHTTIME
     Route: 067
     Dates: start: 201902, end: 2019
  4. IMVEXXY [Suspect]
     Active Substance: ESTRADIOL
     Dosage: 10 ?G, 2X/WEEK AT NIGHTTIME
     Route: 067
     Dates: start: 2019, end: 201903
  5. GLIPIZIDE. [Concomitant]
     Active Substance: GLIPIZIDE
  6. TOPROL XL [Concomitant]
     Active Substance: METOPROLOL SUCCINATE
  7. INSULIN [Concomitant]
     Active Substance: INSULIN NOS
     Dosage: 1 SHOT, 1X/DAY

REACTIONS (3)
  - Peripheral swelling [Recovering/Resolving]
  - Off label use [Recovered/Resolved]
  - Gait disturbance [Recovering/Resolving]

NARRATIVE: CASE EVENT DATE: 2019
